FAERS Safety Report 5036154-6 (Version None)
Quarter: 2006Q2

REPORT INFORMATION
  Report Type: 
  Country: None (occurrence: None)
  Receive Date: 20060627
  Receipt Date: 20060602
  Transmission Date: 20061013
  Serious: Yes (Hospitalization)
  Sender: FDA-Public Use
  Company Number: JP-MERCK-0606USA01578

PATIENT
  Age: 57 Year
  Sex: Male

DRUGS (6)
  1. ETODOLAC [Concomitant]
     Indication: INTESTINAL OBSTRUCTION
     Route: 048
     Dates: start: 20060215
  2. BETAMETHASONE VALERATE [Concomitant]
     Indication: INTESTINAL OBSTRUCTION
     Route: 048
     Dates: start: 20060215
  3. MAGNESIUM OXIDE [Concomitant]
     Indication: INTESTINAL OBSTRUCTION
     Route: 048
     Dates: start: 20060215
  4. ETIZOLAM [Concomitant]
     Indication: CANCER PAIN
     Route: 048
     Dates: start: 20060215
  5. PEPCID RPD [Suspect]
     Indication: GASTRIC ULCER
     Route: 048
     Dates: start: 20060215, end: 20060601
  6. ETODOLAC [Concomitant]
     Indication: CANCER PAIN
     Route: 048
     Dates: start: 20060215

REACTIONS (6)
  - ALANINE AMINOTRANSFERASE INCREASED [None]
  - ASPARTATE AMINOTRANSFERASE INCREASED [None]
  - GAMMA-GLUTAMYLTRANSFERASE INCREASED [None]
  - HEPATIC FUNCTION ABNORMAL [None]
  - INTESTINAL OBSTRUCTION [None]
  - NAUSEA [None]
